FAERS Safety Report 18697641 (Version 3)
Quarter: 2021Q1

REPORT INFORMATION
  Report Type: Spontaneous
  Country: JP (occurrence: JP)
  Receive Date: 20210105
  Receipt Date: 20210219
  Transmission Date: 20210419
  Serious: Yes (Other)
  Sender: FDA-Public Use
  Company Number: JP-TAKEDA-2020TUS060852

PATIENT
  Age: 47 Year
  Sex: Male

DRUGS (8)
  1. REBAMIPIDE [Concomitant]
     Active Substance: REBAMIPIDE
     Indication: CRYSTAL ARTHROPATHY
     Dosage: 100 MILLIGRAM, BID
     Route: 048
     Dates: start: 20200528, end: 20200604
  2. CELECOX [Concomitant]
     Active Substance: CELECOXIB
     Dosage: 100 MILLIGRAM, BID
     Route: 048
     Dates: start: 20200629, end: 20200706
  3. FEBURIC [Suspect]
     Active Substance: FEBUXOSTAT
     Dosage: 20 MILLIGRAM, QD
     Route: 048
     Dates: start: 20200604, end: 20200909
  4. FEBURIC [Suspect]
     Active Substance: FEBUXOSTAT
     Indication: GOUT
     Dosage: 10 MILLIGRAM, QD
     Route: 048
     Dates: start: 20200225
  5. FEBURIC [Suspect]
     Active Substance: FEBUXOSTAT
     Dosage: 5 MILLIGRAM, QD
     Route: 048
     Dates: start: 20201027
  6. REBAMIPIDE [Concomitant]
     Active Substance: REBAMIPIDE
     Dosage: 100 MILLIGRAM, BID
     Route: 048
     Dates: start: 20200629, end: 20200706
  7. FEBURIC [Suspect]
     Active Substance: FEBUXOSTAT
     Dosage: 10 MILLIGRAM, QD
     Route: 048
     Dates: start: 20200910, end: 20201026
  8. CELECOX [Concomitant]
     Active Substance: CELECOXIB
     Indication: CRYSTAL ARTHROPATHY
     Dosage: 100 MILLIGRAM, BID
     Route: 048
     Dates: start: 20200528, end: 20200604

REACTIONS (2)
  - Hepatic function abnormal [Recovering/Resolving]
  - Renal impairment [Not Recovered/Not Resolved]

NARRATIVE: CASE EVENT DATE: 20200903
